FAERS Safety Report 12274517 (Version 1)
Quarter: 2016Q2

REPORT INFORMATION
  Report Type: Spontaneous
  Country: US (occurrence: US)
  Receive Date: 20160415
  Receipt Date: 20160415
  Transmission Date: 20160815
  Serious: No
  Sender: FDA-Public Use
  Company Number: US-ALLERGAN-1505961US

PATIENT
  Sex: Female
  Weight: 71.2 kg

DRUGS (3)
  1. LATISSE [Suspect]
     Active Substance: BIMATOPROST
     Indication: GROWTH OF EYELASHES
     Dosage: UNK
     Route: 061
  2. SYNTHROID [Concomitant]
     Active Substance: LEVOTHYROXINE SODIUM
     Indication: HYPOTHYROIDISM
     Dosage: UNK
     Route: 048
  3. LIOTHYRONINE [Concomitant]
     Active Substance: LIOTHYRONINE
     Indication: HYPOTHYROIDISM
     Dosage: 5 ?G, QD
     Dates: start: 201504

REACTIONS (8)
  - Skin discolouration [Not Recovered/Not Resolved]
  - Erythema of eyelid [Not Recovered/Not Resolved]
  - Eyelid exfoliation [Unknown]
  - Eyelid oedema [Unknown]
  - Inappropriate schedule of drug administration [Unknown]
  - Eyelid ptosis [Unknown]
  - Hypersensitivity [Unknown]
  - Ocular hyperaemia [Unknown]
